FAERS Safety Report 15055250 (Version 3)
Quarter: 2018Q4

REPORT INFORMATION
  Report Type: Spontaneous
  Country: US (occurrence: US)
  Receive Date: 20180622
  Receipt Date: 20181218
  Transmission Date: 20190204
  Serious: Yes (Disabling)
  Sender: FDA-Public Use
  Company Number: US-OTSUKA-2018_015666

PATIENT
  Sex: Male

DRUGS (8)
  1. ABILIFY [Suspect]
     Active Substance: ARIPIPRAZOLE
     Indication: POST-TRAUMATIC STRESS DISORDER
  2. ABILIFY [Suspect]
     Active Substance: ARIPIPRAZOLE
     Indication: ANXIETY
  3. ABILIFY [Suspect]
     Active Substance: ARIPIPRAZOLE
     Indication: ALCOHOL ABUSE
  4. ABILIFY [Suspect]
     Active Substance: ARIPIPRAZOLE
     Indication: AGITATION
     Dosage: 30 MG, QD
     Route: 065
     Dates: end: 201301
  5. ABILIFY [Suspect]
     Active Substance: ARIPIPRAZOLE
     Indication: SUBSTANCE ABUSE
  6. ABILIFY [Suspect]
     Active Substance: ARIPIPRAZOLE
     Indication: IRRITABILITY
  7. ABILIFY [Suspect]
     Active Substance: ARIPIPRAZOLE
     Indication: BIPOLAR DISORDER
     Dosage: 10 MG, QD
     Route: 065
     Dates: start: 200801
  8. ABILIFY [Suspect]
     Active Substance: ARIPIPRAZOLE
     Indication: DEPRESSION
     Dosage: 15 MG, QD
     Route: 065

REACTIONS (22)
  - Obsessive-compulsive disorder [Recovered/Resolved]
  - Emotional distress [Unknown]
  - Pain [Unknown]
  - Economic problem [Unknown]
  - Product use in unapproved indication [Unknown]
  - Condition aggravated [Recovered/Resolved]
  - Bankruptcy [Unknown]
  - Homeless [Unknown]
  - Condition aggravated [Unknown]
  - Impulse-control disorder [Unknown]
  - Sexually transmitted disease [Unknown]
  - Eating disorder [Recovered/Resolved]
  - Gambling disorder [Recovered/Resolved]
  - Divorced [Unknown]
  - Anhedonia [Unknown]
  - Dermatillomania [Recovered/Resolved]
  - Compulsive shopping [Recovered/Resolved]
  - Anxiety [Unknown]
  - Disability [Unknown]
  - Injury [Unknown]
  - Trichotillomania [Recovered/Resolved]
  - Compulsive sexual behaviour [Recovered/Resolved]

NARRATIVE: CASE EVENT DATE: 2008
